FAERS Safety Report 9521021 (Version 1)
Quarter: 2013Q3

REPORT INFORMATION
  Report Type: Spontaneous
  Country: US (occurrence: None)
  Receive Date: 20130911
  Receipt Date: 20130911
  Transmission Date: 20140515
  Serious: No
  Sender: FDA-Public Use
  Company Number: AEUSA201300012

PATIENT
  Age: 79 Year
  Sex: Female
  Weight: 88.9 kg

DRUGS (1)
  1. GAMUNEX-C [Suspect]
     Indication: SELECTIVE IGG SUBCLASS DEFICIENCY
     Dosage: 30GM;QM;IV
     Route: 042
     Dates: start: 2010

REACTIONS (1)
  - Hypotension [None]
